FAERS Safety Report 7145004-3 (Version None)
Quarter: 2010Q4

REPORT INFORMATION
  Report Type: 
  Country: None (occurrence: None)
  Receive Date: 20101208
  Receipt Date: 20101130
  Transmission Date: 20110411
  Serious: Yes (Other)
  Sender: FDA-Public Use
  Company Number: FR-JNJFOC-20101007016

PATIENT
  Sex: Male
  Weight: 85 kg

DRUGS (7)
  1. DURAGESIC-100 [Suspect]
     Indication: NEURALGIA
     Route: 062
  2. DURAGESIC-100 [Suspect]
     Route: 062
  3. ACTIQ [Suspect]
     Indication: NEURALGIA
     Route: 048
  4. ACTIQ [Suspect]
     Route: 048
  5. ACETAMINOPHEN [Concomitant]
     Indication: ILL-DEFINED DISORDER
     Dosage: 1 TO 4 G PER DAY
     Route: 048
  6. NORDAZ [Concomitant]
     Indication: ILL-DEFINED DISORDER
     Route: 048
  7. INEXIUM [Concomitant]
     Indication: ILL-DEFINED DISORDER
     Route: 048

REACTIONS (2)
  - DRUG DEPENDENCE [None]
  - MEDICATION ERROR [None]
